FAERS Safety Report 16521746 (Version 1)
Quarter: 2019Q3

REPORT INFORMATION
  Report Type: Spontaneous
  Country: BE (occurrence: BE)
  Receive Date: 20190703
  Receipt Date: 20190703
  Transmission Date: 20191004
  Serious: Yes (Life-Threatening)
  Sender: FDA-Public Use
  Company Number: BE-TEVA-2019-BE-1072097

PATIENT
  Age: 60 Year
  Sex: Male
  Weight: 66 kg

DRUGS (1)
  1. MOXIFLOXACIN 0.4G TABLET [Suspect]
     Active Substance: MOXIFLOXACIN
     Indication: INFECTION
     Dosage: 400 MILLIGRAM DAILY; 400 MG/J
     Route: 048
     Dates: start: 20170712, end: 20170727

REACTIONS (2)
  - Aortic dissection [Unknown]
  - Tendonitis [Unknown]

NARRATIVE: CASE EVENT DATE: 20170927
